FAERS Safety Report 13573004 (Version 1)
Quarter: 2017Q2

REPORT INFORMATION
  Report Type: Report from Study
  Country: JP (occurrence: JP)
  Receive Date: 20170523
  Receipt Date: 20170523
  Transmission Date: 20170830
  Serious: Yes (Death, Hospitalization, Other)
  Sender: FDA-Public Use
  Company Number: JP-002147023-PHHY2012JP029300

PATIENT
  Age: 100 Year
  Sex: Female
  Weight: 37 kg

DRUGS (14)
  1. RASILEZ [Suspect]
     Active Substance: ALISKIREN
     Dosage: 75 MG, QD
     Route: 048
     Dates: start: 20110903, end: 20110916
  2. ATELEC [Concomitant]
     Active Substance: CILNIDIPINE
     Indication: HYPERTENSION
     Dosage: 20 MG, UNK
     Route: 048
     Dates: start: 20110803, end: 20110920
  3. RASILEZ [Suspect]
     Active Substance: ALISKIREN
     Dosage: 150 MG, UNK
     Route: 065
     Dates: start: 20110917, end: 20110920
  4. ALDACTONE [Concomitant]
     Active Substance: SPIRONOLACTONE
     Indication: PRODUCT USED FOR UNKNOWN INDICATION
     Dosage: 12.5 MG, UNK
     Route: 048
     Dates: start: 20110803, end: 20110920
  5. DIART [Concomitant]
     Active Substance: AZOSEMIDE
     Indication: HYPERTENSION
     Dosage: 15 MG, UNK
     Route: 048
     Dates: start: 20110803, end: 20110920
  6. RASILEZ [Suspect]
     Active Substance: ALISKIREN
     Dosage: 150 MG, QD
     Route: 048
     Dates: start: 20110917, end: 20110920
  7. TAKEPRON [Concomitant]
     Active Substance: LANSOPRAZOLE
     Indication: PRODUCT USED FOR UNKNOWN INDICATION
     Dosage: 15 MG, UNK
     Route: 048
     Dates: start: 20110803, end: 20110920
  8. ARICEPT [Concomitant]
     Active Substance: DONEPEZIL HYDROCHLORIDE
     Indication: PRODUCT USED FOR UNKNOWN INDICATION
     Dosage: 5 MG, UNK
     Route: 048
     Dates: start: 20110803, end: 20110920
  9. DEPAS [Concomitant]
     Active Substance: ETIZOLAM
     Indication: PRODUCT USED FOR UNKNOWN INDICATION
     Dosage: 0.25 MG, UNK
     Route: 048
     Dates: start: 20110803, end: 20110920
  10. NATRIX [Concomitant]
     Active Substance: INDAPAMIDE
     Indication: HYPERTENSION
     Dosage: 0.5 MG, UNK
     Route: 065
     Dates: start: 20110803, end: 20110920
  11. RASILEZ [Suspect]
     Active Substance: ALISKIREN
     Indication: HYPERTENSION
     Dosage: 75 MG, UNK
     Route: 048
     Dates: start: 20110903, end: 20110916
  12. BAYASPIRIN [Concomitant]
     Active Substance: ASPIRIN
     Indication: PRODUCT USED FOR UNKNOWN INDICATION
     Dosage: 100 MG, UNK
     Route: 048
     Dates: start: 20110803, end: 20110920
  13. OLMETEC [Concomitant]
     Active Substance: OLMESARTAN MEDOXOMIL
     Indication: HYPERTENSION
     Dosage: 20 MG, UNK
     Route: 048
     Dates: start: 20110803, end: 20110920
  14. PANALDINE [Concomitant]
     Active Substance: TICLOPIDINE HYDROCHLORIDE
     Indication: PRODUCT USED FOR UNKNOWN INDICATION
     Dosage: 200 MG, UNK
     Route: 065
     Dates: start: 20110803, end: 20110920

REACTIONS (4)
  - Pneumonia [Fatal]
  - Blood pressure systolic increased [Unknown]
  - Oxygen saturation decreased [Fatal]
  - Pyrexia [Fatal]

NARRATIVE: CASE EVENT DATE: 20110914
